FAERS Safety Report 4310569-3 (Version None)
Quarter: 2004Q1

REPORT INFORMATION
  Report Type: 
  Country: None (occurrence: None)
  Receive Date: 20040303
  Receipt Date: 20040205
  Transmission Date: 20041129
  Serious: Yes (Death)
  Sender: FDA-Public Use
  Company Number: DE-GLAXOSMITHKLINE-D0043060A

PATIENT
  Age: 72 Year
  Sex: Female
  Weight: 89 kg

DRUGS (2)
  1. HYCAMTIN [Suspect]
     Indication: OVARIAN CANCER
     Dosage: 2.6MGM2 PER DAY
     Route: 042
     Dates: start: 20030303, end: 20030813
  2. ZOFRAN [Concomitant]
     Route: 042
     Dates: start: 20030303, end: 20030813

REACTIONS (8)
  - ALOPECIA [None]
  - ANAEMIA [None]
  - DISEASE PROGRESSION [None]
  - LEUKOPENIA [None]
  - OVARIAN CANCER [None]
  - PARANEOPLASTIC SYNDROME [None]
  - SHOCK [None]
  - THROMBOCYTOPENIA [None]
